FAERS Safety Report 25236023 (Version 7)
Quarter: 2025Q3

REPORT INFORMATION
  Report Type: Spontaneous
  Country: US (occurrence: US)
  Receive Date: 20250424
  Receipt Date: 20250821
  Transmission Date: 20251021
  Serious: No
  Sender: PFIZER
  Company Number: US-PFIZER INC-202500085392

PATIENT
  Age: 15 Year
  Sex: Male

DRUGS (2)
  1. NGENLA [Suspect]
     Active Substance: SOMATROGON-GHLA
     Dosage: 40 MG, WEEKLY (ADMINISTERS 20 MG IN EACH ARM)
  2. NGENLA [Suspect]
     Active Substance: SOMATROGON-GHLA

REACTIONS (5)
  - Mood altered [Unknown]
  - Abnormal behaviour [Unknown]
  - Incorrect dose administered by device [Unknown]
  - Device issue [Unknown]
  - Device malfunction [Unknown]
